FAERS Safety Report 9193952 (Version 1)
Quarter: 2013Q1

REPORT INFORMATION
  Report Type: Spontaneous
  Country: US (occurrence: US)
  Receive Date: 20130327
  Receipt Date: 20130327
  Transmission Date: 20140127
  Serious: Yes (Other)
  Sender: FDA-Public Use
  Company Number: CHPA2013US005165

PATIENT
  Age: 77 Year
  Sex: Female

DRUGS (1)
  1. EX-LAX REG STR CHOCOLATED LAX PCS SEN [Suspect]
     Indication: CONSTIPATION
     Dosage: 4 DF, ONCE/SINGLE
     Route: 048
     Dates: start: 20130319, end: 20130319

REACTIONS (4)
  - Blood glucose increased [Unknown]
  - Concomitant disease aggravated [Unknown]
  - Diarrhoea [Recovered/Resolved]
  - Incorrect dose administered [Unknown]
